FAERS Safety Report 6795974-8 (Version None)
Quarter: 2010Q2

REPORT INFORMATION
  Report Type: 
  Country: None (occurrence: None)
  Receive Date: 20100625
  Receipt Date: 20100617
  Transmission Date: 20101027
  Serious: Yes (Hospitalization)
  Sender: FDA-Public Use
  Company Number: B0662471A

PATIENT
  Age: 16 Year
  Sex: Female

DRUGS (2)
  1. AMOXICILLIN AND CLAVULANATE POTASSIUM [Suspect]
     Indication: ACUTE TONSILLITIS
     Dosage: 625MG THREE TIMES PER DAY
     Route: 065
  2. EPINEPHRINE [Suspect]
     Route: 042

REACTIONS (11)
  - ACUTE CORONARY SYNDROME [None]
  - ANAPHYLACTIC SHOCK [None]
  - ARTERIOSPASM CORONARY [None]
  - DYSPHAGIA [None]
  - DYSPNOEA [None]
  - ELECTROCARDIOGRAM ST SEGMENT ELEVATION [None]
  - ERYTHEMA [None]
  - HYPOTENSION [None]
  - LIP SWELLING [None]
  - RASH ERYTHEMATOUS [None]
  - TROPONIN T INCREASED [None]
